FAERS Safety Report 15751169 (Version 1)
Quarter: 2018Q4

REPORT INFORMATION
  Report Type: Spontaneous
  Country: US (occurrence: US)
  Receive Date: 20181221
  Receipt Date: 20181221
  Transmission Date: 20190205
  Serious: No
  Sender: FDA-Public Use
  Company Number: US-THERAPEUTICSMD-2018TMD00263

PATIENT
  Age: 75 Year
  Sex: Female
  Weight: 63.49 kg

DRUGS (4)
  1. IMVEXXY [Suspect]
     Active Substance: ESTRADIOL
     Indication: VULVOVAGINAL DRYNESS
     Dosage: 10 ?G BEFORE BED
     Route: 067
     Dates: start: 20181002, end: 20181011
  2. CALCIUM [Concomitant]
     Active Substance: CALCIUM
  3. NYSTATIN. [Concomitant]
     Active Substance: NYSTATIN
     Route: 067
  4. VITAMIN D [Concomitant]
     Active Substance: CHOLECALCIFEROL

REACTIONS (3)
  - Off label use [Recovered/Resolved]
  - Breast pain [Recovering/Resolving]
  - Breast engorgement [Recovering/Resolving]

NARRATIVE: CASE EVENT DATE: 201810
